FAERS Safety Report 5715763-2 (Version None)
Quarter: 2008Q2

REPORT INFORMATION
  Report Type: 
  Country: None (occurrence: None)
  Receive Date: 20080422
  Receipt Date: 20080410
  Transmission Date: 20081010
  Serious: Yes (Death, Other)
  Sender: FDA-Public Use
  Company Number: 062-20785-08041080

PATIENT
  Age: 70 Year
  Sex: Male
  Weight: 75 kg

DRUGS (12)
  1. THALIDOMIDE [Suspect]
     Indication: MULTIPLE MYELOMA
     Dosage: 100 MG, 2 IN 1 D, ORAL
     Route: 048
     Dates: start: 20061204, end: 20070301
  2. DEXAMETHASONE TAB [Suspect]
     Indication: MULTIPLE MYELOMA
     Dosage: 40 MG, FOUR DAYS EVERY FOUR WEEKS, ORAL; 50-0-20 MMG, DAILY,
     Route: 048
     Dates: start: 20061204
  3. BORTEZOMIB (BORTEZOMIB) [Suspect]
     Indication: MULTIPLE MYELOMA
     Dates: start: 20070401, end: 20071001
  4. BORTEZOMIB (BORTEZOMIB) [Suspect]
     Indication: MULTIPLE MYELOMA
     Dates: start: 20080124
  5. PANTOPRAZOLE (PANTOPRAZOLE) (20 MILLIGRAM) [Concomitant]
  6. MORPHINE (MORPHINE) (10 MILLIGRAM) [Concomitant]
  7. METAMIZOLE (METAMIZOLE) (500 MILLIGRAM) [Concomitant]
  8. AMIODARONE (AMIODARONE) (200 MILLIGRAM) [Concomitant]
  9. ATORVASTATIN CALCIUM [Concomitant]
  10. VALERIAN (VALERIAN EXTRACT) (DROPS) [Concomitant]
  11. LACTULOSE (LACTULOSE) (LIQUID) [Concomitant]
  12. PHENPROCOUMON (PHENPROCOUMON) [Concomitant]

REACTIONS (9)
  - CANDIDA PNEUMONIA [None]
  - CARDIAC FAILURE [None]
  - DISEASE PROGRESSION [None]
  - EXTRADURAL HAEMATOMA [None]
  - FAECAL INCONTINENCE [None]
  - NO THERAPEUTIC RESPONSE [None]
  - PARAPARESIS [None]
  - SUBDURAL HAEMATOMA [None]
  - URINARY INCONTINENCE [None]
